FAERS Safety Report 16581645 (Version 1)
Quarter: 2019Q3

REPORT INFORMATION
  Report Type: Spontaneous
  Country: US (occurrence: US)
  Receive Date: 20190716
  Receipt Date: 20190716
  Transmission Date: 20191004
  Serious: No
  Sender: FDA-Public Use
  Company Number: US-US WORLDMEDS, LLC-USW201906-001094

PATIENT
  Age: 65 Year
  Sex: Female
  Weight: 53.5 kg

DRUGS (11)
  1. GOCOVRI [Suspect]
     Active Substance: AMANTADINE
     Indication: DYSKINESIA
     Route: 048
     Dates: start: 20190320, end: 20190326
  2. SINEMET [Suspect]
     Active Substance: CARBIDOPA\LEVODOPA
     Dates: start: 20190320
  3. ENTACAPONE. [Concomitant]
     Active Substance: ENTACAPONE
  4. XADAGO [Suspect]
     Active Substance: SAFINAMIDE MESYLATE
     Indication: PRODUCT USED FOR UNKNOWN INDICATION
  5. GOCOVRI [Suspect]
     Active Substance: AMANTADINE
     Route: 048
     Dates: start: 20190327
  6. GOCOVRI [Suspect]
     Active Substance: AMANTADINE
     Dates: start: 20190408
  7. BUPROPION. [Concomitant]
     Active Substance: BUPROPION
  8. VITAMINS [Concomitant]
     Active Substance: VITAMINS
  9. APOKYN [Concomitant]
     Active Substance: APOMORPHINE HYDROCHLORIDE
  10. SINEMET [Suspect]
     Active Substance: CARBIDOPA\LEVODOPA
     Indication: PRODUCT USED FOR UNKNOWN INDICATION
     Dosage: 25/100 MG
     Dates: end: 20190328
  11. LISINOPRIL. [Concomitant]
     Active Substance: LISINOPRIL

REACTIONS (6)
  - Dizziness [Recovered/Resolved]
  - Product dose omission [Unknown]
  - Gait disturbance [Recovered/Resolved]
  - Hypotension [Recovered/Resolved]
  - Drug interaction [Unknown]
  - Bradyphrenia [Unknown]

NARRATIVE: CASE EVENT DATE: 20190325
